FAERS Safety Report 9037890 (Version 2)
Quarter: 2013Q2

REPORT INFORMATION
  Report Type: Spontaneous
  Country: US (occurrence: US)
  Receive Date: 20130129
  Receipt Date: 20130617
  Transmission Date: 20140414
  Serious: Yes (Hospitalization, Disabling)
  Sender: FDA-Public Use
  Company Number: US-BAYER-2013-011363

PATIENT
  Age: 46 Year
  Sex: Female
  Weight: 80.27 kg

DRUGS (31)
  1. YAZ [Suspect]
     Dosage: UNK
     Dates: start: 2009, end: 201007
  2. YAZ [Suspect]
     Dosage: UNK
     Dates: start: 201007, end: 201007
  3. ADIPEX [Concomitant]
     Dosage: 37.5 MG, ONCE PER DAY
     Route: 048
  4. FLU [Concomitant]
  5. LEVAQUIN [Concomitant]
     Indication: SINUSITIS
  6. RESTORIL [Concomitant]
     Dosage: 30 MG, EVERY NIGHT
  7. METFORMIN [Concomitant]
     Dosage: 500 MG, TWO TIMES PER DAY
     Route: 048
  8. MUCINEX [Concomitant]
     Indication: RHINITIS
  9. ULTRAM [Concomitant]
     Indication: PAIN
     Dosage: 50 MG, TWO TIMES PER DAY
     Route: 048
  10. AUGMENTIN [Concomitant]
  11. COMPAZINE [Concomitant]
     Dosage: 10 MG, EVERY 4 HOURS AS NEEDED
     Route: 048
  12. AMOXICILLIN W/CLAVULANATE POTASSIUM [Concomitant]
     Dosage: 875-125 MG TWO TIMES PER DAY
     Route: 048
  13. ROXICODONE [Concomitant]
     Dosage: 5 MG, TAKE 1-2 EVERY 4 HOURS AS NEEDED
     Route: 048
  14. COLACE [Concomitant]
     Dosage: 100 MG, TWO TIMES PER DAY
     Route: 048
  15. KEPPRA [Concomitant]
     Indication: CONVULSION
  16. TYLENOL [PARACETAMOL] [Concomitant]
     Indication: PAIN
  17. FIORICET [Concomitant]
     Indication: PAIN
  18. MANNITOL [Concomitant]
  19. DILANTIN [Concomitant]
     Indication: CONVULSION
  20. GABAPENTIN [Concomitant]
     Indication: CONVULSION
  21. NORTRIPTYLINE [Concomitant]
     Indication: HEADACHE
  22. NORTRIPTYLINE [Concomitant]
     Indication: COMPLEX REGIONAL PAIN SYNDROME
  23. AMITRIPTYLINE [Concomitant]
  24. KLONOPIN [Concomitant]
  25. BUTALBITAL, ACETAMINOPHEN + CAFFEINE [Concomitant]
  26. LEVETIRACETAM [Concomitant]
  27. NEURONTIN [Concomitant]
  28. SENOKOT-S [Concomitant]
  29. MIRALAX [Concomitant]
  30. PRILOSEC [Concomitant]
  31. DULCOLAX [BISACODYL] [Concomitant]

REACTIONS (6)
  - Intracranial venous sinus thrombosis [Recovering/Resolving]
  - Cerebral thrombosis [Recovering/Resolving]
  - Cerebrovascular accident [Recovering/Resolving]
  - Injury [Recovering/Resolving]
  - Pain [Recovering/Resolving]
  - Anxiety [None]
